FAERS Safety Report 8010908-6 (Version None)
Quarter: 2011Q4

REPORT INFORMATION
  Report Type: 
  Country: None (occurrence: None)
  Receive Date: 20111228
  Receipt Date: 20111220
  Transmission Date: 20120403
  Serious: Yes (Hospitalization)
  Sender: FDA-Public Use
  Company Number: US-US-EMD SERONO, INC.-7010847

PATIENT
  Sex: Male

DRUGS (6)
  1. UNSPECIFIED ROUTINE MEDICATIONS [Concomitant]
  2. REBIF [Suspect]
     Indication: MULTIPLE SCLEROSIS
     Route: 058
     Dates: start: 20030502, end: 20100703
  3. ASPIRIN [Concomitant]
     Dates: start: 20080204
  4. PLAVIX [Concomitant]
     Dates: start: 20110705
  5. LIPITOR [Concomitant]
     Dates: start: 20110705
  6. METOPROLOL SUCCINATE [Concomitant]
     Dates: start: 20110705

REACTIONS (1)
  - DIARRHOEA [None]
